FAERS Safety Report 25070001 (Version 1)
Quarter: 2025Q1

REPORT INFORMATION
  Report Type: Report from Study
  Country: ES (occurrence: ES)
  Receive Date: 20250312
  Receipt Date: 20250312
  Transmission Date: 20250409
  Serious: Yes (Other)
  Sender: MYLAN
  Company Number: ES-SA-2024SA373654

PATIENT
  Age: 76 Year
  Sex: Female

DRUGS (28)
  1. ACETAMINOPHEN [Suspect]
     Active Substance: ACETAMINOPHEN
     Indication: Pain
  2. ACETAMINOPHEN [Suspect]
     Active Substance: ACETAMINOPHEN
     Route: 048
  3. ACETAMINOPHEN [Suspect]
     Active Substance: ACETAMINOPHEN
     Route: 048
  4. ACETAMINOPHEN [Suspect]
     Active Substance: ACETAMINOPHEN
  5. METAMIZOLE [Suspect]
     Active Substance: METAMIZOLE
     Indication: Pain
  6. METAMIZOLE [Suspect]
     Active Substance: METAMIZOLE
     Route: 048
  7. METAMIZOLE [Suspect]
     Active Substance: METAMIZOLE
     Route: 048
  8. METAMIZOLE [Suspect]
     Active Substance: METAMIZOLE
  9. INSULIN GLARGINE [Suspect]
     Active Substance: INSULIN GLARGINE
     Indication: Type 2 diabetes mellitus
     Dosage: 48 INTERNATIONAL UNIT, QD
  10. INSULIN GLARGINE [Suspect]
     Active Substance: INSULIN GLARGINE
     Dosage: 48 INTERNATIONAL UNIT, QD
  11. INSULIN GLARGINE [Suspect]
     Active Substance: INSULIN GLARGINE
     Dosage: 48 INTERNATIONAL UNIT, QD
     Route: 058
  12. INSULIN GLARGINE [Suspect]
     Active Substance: INSULIN GLARGINE
     Dosage: 48 INTERNATIONAL UNIT, QD
     Route: 058
  13. INSULIN GLARGINE [Suspect]
     Active Substance: INSULIN GLARGINE
     Dosage: 44 INTERNATIONAL UNIT, QD
     Dates: start: 20241211
  14. INSULIN GLARGINE [Suspect]
     Active Substance: INSULIN GLARGINE
     Dosage: 44 INTERNATIONAL UNIT, QD
     Dates: start: 20241211
  15. INSULIN GLARGINE [Suspect]
     Active Substance: INSULIN GLARGINE
     Dosage: 44 INTERNATIONAL UNIT, QD
     Route: 058
     Dates: start: 20241211
  16. INSULIN GLARGINE [Suspect]
     Active Substance: INSULIN GLARGINE
     Dosage: 44 INTERNATIONAL UNIT, QD
     Route: 058
     Dates: start: 20241211
  17. INSULIN GLARGINE [Suspect]
     Active Substance: INSULIN GLARGINE
     Dosage: 46 INTERNATIONAL UNIT, QD
  18. INSULIN GLARGINE [Suspect]
     Active Substance: INSULIN GLARGINE
     Dosage: 46 INTERNATIONAL UNIT, QD
     Route: 058
  19. INSULIN GLARGINE [Suspect]
     Active Substance: INSULIN GLARGINE
     Dosage: 46 INTERNATIONAL UNIT, QD
  20. INSULIN GLARGINE [Suspect]
     Active Substance: INSULIN GLARGINE
     Dosage: 46 INTERNATIONAL UNIT, QD
     Route: 058
  21. NOVORAPID [Concomitant]
     Active Substance: INSULIN ASPART
     Indication: Type 2 diabetes mellitus
     Dosage: 120 MILLIGRAM, QD (OVER)
  22. NOVORAPID [Concomitant]
     Active Substance: INSULIN ASPART
     Dosage: 120 MILLIGRAM, QD (OVER)
     Route: 058
  23. NOVORAPID [Concomitant]
     Active Substance: INSULIN ASPART
     Dosage: 120 MILLIGRAM, QD (OVER)
     Route: 058
  24. NOVORAPID [Concomitant]
     Active Substance: INSULIN ASPART
     Dosage: 120 MILLIGRAM, QD (OVER)
  25. JARDIANCE [Concomitant]
     Active Substance: EMPAGLIFLOZIN
     Dosage: QD
  26. JARDIANCE [Concomitant]
     Active Substance: EMPAGLIFLOZIN
     Dosage: QD
     Route: 065
  27. JARDIANCE [Concomitant]
     Active Substance: EMPAGLIFLOZIN
     Dosage: QD
     Route: 065
  28. JARDIANCE [Concomitant]
     Active Substance: EMPAGLIFLOZIN
     Dosage: QD

REACTIONS (27)
  - Cataract [Not Recovered/Not Resolved]
  - Malaise [Recovered/Resolved]
  - Tremor [Recovered/Resolved]
  - Blood glucose decreased [Recovered/Resolved]
  - Hyperhidrosis [Recovered/Resolved]
  - Hypoacusis [Recovered/Resolved]
  - Abscess limb [Recovered/Resolved]
  - Localised infection [Recovered/Resolved]
  - Memory impairment [Not Recovered/Not Resolved]
  - Hypertension [Recovered/Resolved]
  - Haematological infection [Recovered/Resolved]
  - Cardiac disorder [Unknown]
  - Headache [Not Recovered/Not Resolved]
  - Nervousness [Not Recovered/Not Resolved]
  - Limb discomfort [Not Recovered/Not Resolved]
  - Eye pruritus [Not Recovered/Not Resolved]
  - Eye pain [Not Recovered/Not Resolved]
  - Tendon discomfort [Unknown]
  - Fatigue [Unknown]
  - Dyspnoea [Unknown]
  - Pain in extremity [Not Recovered/Not Resolved]
  - Back pain [Recovered/Resolved]
  - Pain [Recovered/Resolved]
  - Visual impairment [Not Recovered/Not Resolved]
  - Blood glucose fluctuation [Not Recovered/Not Resolved]
  - Hyperglycaemia [Recovered/Resolved]
  - Incorrect dose administered [Unknown]

NARRATIVE: CASE EVENT DATE: 20250209
